FAERS Safety Report 17298090 (Version 1)
Quarter: 2020Q1

REPORT INFORMATION
  Report Type: Spontaneous
  Country: SE (occurrence: SE)
  Receive Date: 20200121
  Receipt Date: 20200121
  Transmission Date: 20200409
  Serious: No
  Sender: FDA-Public Use
  Company Number: SE-JAZZ-2019-SE-017581

PATIENT
  Sex: Male

DRUGS (2)
  1. XYREM [Suspect]
     Active Substance: SODIUM OXYBATE
     Indication: NARCOLEPSY
     Dosage: UNKNOWN DOSE
     Route: 048
  2. ACETYLCYSTEIN [Concomitant]
     Active Substance: ACETYLCYSTEINE

REACTIONS (4)
  - Cough [Unknown]
  - Pharyngitis [Unknown]
  - Abdominal discomfort [Unknown]
  - Insomnia [Unknown]
